FAERS Safety Report 10240284 (Version 1)
Quarter: 2014Q2

REPORT INFORMATION
  Report Type: Report from Study
  Country: BR (occurrence: BR)
  Receive Date: 20140617
  Receipt Date: 20140617
  Transmission Date: 20141212
  Serious: Yes (Hospitalization, Other)
  Sender: FDA-Public Use
  Company Number: PHHY2014BR074306

PATIENT
  Age: 11 Year
  Sex: Female
  Weight: 52 kg

DRUGS (1)
  1. TRILEPTAL [Suspect]
     Indication: CONVULSION
     Dosage: 1 ML, TID (2 OR 3 TIMES DAILY)
     Route: 048

REACTIONS (13)
  - Cerebrovascular accident [Not Recovered/Not Resolved]
  - Cerebral palsy [Not Recovered/Not Resolved]
  - Scoliosis [Not Recovered/Not Resolved]
  - Hallucination [Not Recovered/Not Resolved]
  - Convulsion [Not Recovered/Not Resolved]
  - Hypertension [Not Recovered/Not Resolved]
  - Prosopagnosia [Unknown]
  - Feeling abnormal [Not Recovered/Not Resolved]
  - Learning disorder [Not Recovered/Not Resolved]
  - Drooling [Not Recovered/Not Resolved]
  - Anxiety [Not Recovered/Not Resolved]
  - Abnormal behaviour [Unknown]
  - Insomnia [Not Recovered/Not Resolved]
